FAERS Safety Report 24934156 (Version 1)
Quarter: 2025Q1

REPORT INFORMATION
  Report Type: Report from Study
  Country: CA (occurrence: CA)
  Receive Date: 20250206
  Receipt Date: 20250206
  Transmission Date: 20250408
  Serious: No
  Sender: EXELIXIS
  Company Number: CA-IPSEN Group, Research and Development-2024-23394

PATIENT
  Sex: Male

DRUGS (3)
  1. CABOMETYX [Suspect]
     Active Substance: CABOZANTINIB S-MALATE
     Indication: Renal cell carcinoma
     Dosage: 40 MG, QD
     Route: 065
     Dates: start: 20220920
  2. AXITINIB [Concomitant]
     Active Substance: AXITINIB
  3. IMODIUM [Concomitant]
     Active Substance: LOPERAMIDE HYDROCHLORIDE

REACTIONS (2)
  - Chest pain [Unknown]
  - Hyperhidrosis [Unknown]
